FAERS Safety Report 6912951-4 (Version None)
Quarter: 2010Q3

REPORT INFORMATION
  Report Type: 
  Country: None (occurrence: None)
  Receive Date: 20100806
  Receipt Date: 20090413
  Transmission Date: 20110219
  Serious: No
  Sender: FDA-Public Use
  Company Number: US-PFIZER INC-2009185310

PATIENT
  Age: 78 Year
  Sex: Female

DRUGS (2)
  1. DETROL LA [Suspect]
     Indication: POLLAKIURIA
     Dosage: 4 MG, UNK
     Dates: start: 20090316
  2. DETROL LA [Suspect]
     Indication: BLADDER DISORDER

REACTIONS (1)
  - POLLAKIURIA [None]
